FAERS Safety Report 10366019 (Version 2)
Quarter: 2014Q3

REPORT INFORMATION
  Report Type: Spontaneous
  Country: US (occurrence: US)
  Receive Date: 20140806
  Receipt Date: 20140806
  Transmission Date: 20150326
  Serious: Yes (Hospitalization)
  Sender: FDA-Public Use
  Company Number: US-GLAXOSMITHKLINE-B0695962A

PATIENT
  Sex: Female

DRUGS (1)
  1. AVANDIA [Suspect]
     Active Substance: ROSIGLITAZONE MALEATE
     Indication: DIABETES MELLITUS
     Dosage: 8MG PER DAY
     Route: 048
     Dates: start: 200506, end: 201004

REACTIONS (8)
  - Cerebrovascular accident [Unknown]
  - Pleural effusion [Unknown]
  - Coronary artery disease [Unknown]
  - Pericardial effusion [Unknown]
  - Myocardial infarction [Not Recovered/Not Resolved]
  - Lacunar infarction [Unknown]
  - Carotid artery stenosis [Unknown]
  - Cardiac failure congestive [Unknown]
